FAERS Safety Report 5646635-X (Version None)
Quarter: 2008Q1

REPORT INFORMATION
  Report Type: 
  Country: None (occurrence: None)
  Receive Date: 20080303
  Receipt Date: 20080222
  Transmission Date: 20080703
  Serious: Yes (Other)
  Sender: FDA-Public Use
  Company Number: PHEH2006US02521

PATIENT
  Age: 47 Year
  Sex: Female
  Weight: 70.748 kg

DRUGS (8)
  1. AREDIA [Suspect]
     Indication: METASTASES TO BONE
     Dosage: UNK, MONTHLY
     Route: 042
     Dates: start: 20001201
  2. ZOMETA [Suspect]
     Indication: METASTASES TO BONE
     Dates: start: 20030501
  3. ZOMETA [Suspect]
     Dosage: UNK, MONTHLY
     Route: 042
     Dates: start: 20030501
  4. DOCETAXEL [Concomitant]
  5. TRASTUZUMAB [Concomitant]
  6. ANASTROZOLE [Concomitant]
     Indication: CHEMOTHERAPY
  7. VINORELBINE [Concomitant]
     Indication: CHEMOTHERAPY
     Dates: start: 20030501
  8. TAMOXIFEN [Concomitant]
     Indication: HORMONE THERAPY
     Dates: end: 20000401

REACTIONS (14)
  - ALOPECIA [None]
  - BACK PAIN [None]
  - DISEASE PROGRESSION [None]
  - EJECTION FRACTION DECREASED [None]
  - EMOTIONAL DISTRESS [None]
  - GAMMA RADIATION THERAPY TO BRAIN [None]
  - HEADACHE [None]
  - INJURY [None]
  - METASTASES TO CENTRAL NERVOUS SYSTEM [None]
  - METASTASIS [None]
  - OSTEONECROSIS [None]
  - PAIN [None]
  - PAIN IN JAW [None]
  - TUMOUR MARKER INCREASED [None]
